FAERS Safety Report 7378349-2 (Version None)
Quarter: 2011Q1

REPORT INFORMATION
  Report Type: 
  Country: None (occurrence: None)
  Receive Date: 20110328
  Receipt Date: 20110316
  Transmission Date: 20110831
  Serious: Yes (Other)
  Sender: FDA-Public Use
  Company Number: US-ELI_LILLY_AND_COMPANY-US201103005348

PATIENT
  Sex: Female

DRUGS (5)
  1. LANTUS [Concomitant]
  2. HUMALOG [Suspect]
     Indication: DIABETES MELLITUS
     Dosage: 0.5 U, OTHER
  3. HUMALOG [Suspect]
     Dosage: UNK, AS NEEDED
  4. HUMALOG [Suspect]
     Dosage: UNK, AS NEEDED
  5. HUMALOG [Suspect]
     Dosage: 0.5 U, OTHER

REACTIONS (5)
  - PANCREAS TRANSPLANT [None]
  - BLOOD GLUCOSE DECREASED [None]
  - DIZZINESS [None]
  - RENAL TRANSPLANT [None]
  - PANCREATIC INSUFFICIENCY [None]
